FAERS Safety Report 7459366-0 (Version None)
Quarter: 2011Q2

REPORT INFORMATION
  Report Type: 
  Country: None (occurrence: None)
  Receive Date: 20110504
  Receipt Date: 20110504
  Transmission Date: 20111010
  Serious: Yes (Hospitalization, Other)
  Sender: FDA-Public Use
  Company Number: None

PATIENT
  Age: 75 Year
  Sex: Male
  Weight: 81.6475 kg

DRUGS (2)
  1. PLAVIX [Suspect]
     Indication: THROMBOSIS PROPHYLAXIS
     Dosage: 1 A DAY 1 A DAY
     Dates: start: 20100530, end: 20100705
  2. PLAVIX [Suspect]
     Indication: VASCULAR STENT INSERTION
     Dosage: 1 A DAY 1 A DAY
     Dates: start: 20100530, end: 20100705

REACTIONS (6)
  - LACK OF SPONTANEOUS SPEECH [None]
  - FEELING ABNORMAL [None]
  - ASTHENIA [None]
  - STARING [None]
  - ABNORMAL BEHAVIOUR [None]
  - SYNCOPE [None]
